FAERS Safety Report 26063179 (Version 1)
Quarter: 2025Q4

REPORT INFORMATION
  Report Type: Spontaneous
  Country: US (occurrence: US)
  Receive Date: 20251119
  Receipt Date: 20251119
  Transmission Date: 20260117
  Serious: No
  Sender: CIPLA
  Company Number: US-CIPLA LTD.-2025US14256

PATIENT

DRUGS (2)
  1. ALBUTEROL [Suspect]
     Active Substance: ALBUTEROL
     Indication: Wheezing
     Dosage: 180 MICROGRAM, PRN (INHALE 2 PUFFS EVERY FOUR HOURS AS NEEDED) (FIRST BOTTLE)
  2. ALBUTEROL [Suspect]
     Active Substance: ALBUTEROL
     Dosage: 180 MICROGRAM, PRN (INHALE 2 PUFFS EVERY FOUR HOURS AS NEEDED) (SECOND BOTTLE)

REACTIONS (6)
  - Drug dose omission by device [Unknown]
  - Product knowledge deficit [Unknown]
  - Drug ineffective [Unknown]
  - Device delivery system issue [Unknown]
  - Device malfunction [Unknown]
  - Product design issue [Unknown]
